FAERS Safety Report 24417421 (Version 1)
Quarter: 2024Q4

REPORT INFORMATION
  Report Type: Spontaneous
  Country: BG (occurrence: BG)
  Receive Date: 20241009
  Receipt Date: 20241009
  Transmission Date: 20250115
  Serious: Yes (Other)
  Sender: SANOFI AVENTIS
  Company Number: BG-SA-2024SA289495

PATIENT
  Sex: Female

DRUGS (2)
  1. IRBESARTAN [Suspect]
     Active Substance: IRBESARTAN
     Indication: Hypertension
     Dosage: 150MG HALF A TABLET A DAY
     Route: 048
     Dates: start: 2018
  2. HYDROCHLOROTHIAZIDE\IRBESARTAN [Suspect]
     Active Substance: HYDROCHLOROTHIAZIDE\IRBESARTAN
     Indication: Hypertension
     Dosage: 150 MG/12.5 MG HALF A TABLET A DAY
     Route: 048
     Dates: start: 2018

REACTIONS (6)
  - Basal cell carcinoma [Recovering/Resolving]
  - Neoplasm [Recovering/Resolving]
  - Scab [Recovering/Resolving]
  - Telangiectasia [Recovering/Resolving]
  - Inflammation [Recovering/Resolving]
  - Tumour ulceration [Recovering/Resolving]
